FAERS Safety Report 23035367 (Version 2)
Quarter: 2023Q4

REPORT INFORMATION
  Report Type: Spontaneous
  Country: PT (occurrence: PT)
  Receive Date: 20231005
  Receipt Date: 20231017
  Transmission Date: 20240110
  Serious: Yes (Hospitalization)
  Sender: FDA-Public Use
  Company Number: PT-DSJP-DSE-2023-140157

PATIENT
  Age: 90 Year
  Sex: Female
  Weight: 40 kg

DRUGS (3)
  1. EDOXABAN TOSYLATE [Suspect]
     Active Substance: EDOXABAN TOSYLATE
     Indication: Anticoagulant therapy
     Dosage: 30 MG, QD (TAKEN MORE THAN 2 YEARS)
     Route: 065
  2. EDOXABAN TOSYLATE [Suspect]
     Active Substance: EDOXABAN TOSYLATE
     Dosage: 30 MG, QOD (ON ALTERNATE DAYS)
     Route: 065
  3. NITROGLYCERIN [Concomitant]
     Active Substance: NITROGLYCERIN
     Indication: Angina pectoris
     Dosage: UNK
     Route: 062

REACTIONS (7)
  - Fall [Recovered/Resolved]
  - Hip surgery [Recovered/Resolved]
  - Haematochezia [Recovered/Resolved]
  - Mouth haemorrhage [Recovered/Resolved]
  - Contusion [Recovered/Resolved]
  - Accident [Unknown]
  - Off label use [Recovered/Resolved]

NARRATIVE: CASE EVENT DATE: 20230801
